FAERS Safety Report 16829948 (Version 5)
Quarter: 2020Q2

REPORT INFORMATION
  Report Type: Spontaneous
  Country: US (occurrence: US)
  Receive Date: 20190919
  Receipt Date: 20200526
  Transmission Date: 20200713
  Serious: No
  Sender: FDA-Public Use
  Company Number: US-ACTELION-A-NJ2019-195743

PATIENT
  Age: 44 Year
  Sex: Female
  Weight: 64.4 kg

DRUGS (5)
  1. OPSUMIT [Suspect]
     Active Substance: MACITENTAN
     Indication: PULMONARY ARTERIAL HYPERTENSION
     Dosage: 10 MG, QD
     Route: 048
     Dates: start: 20190608
  2. REMODULIN [Suspect]
     Active Substance: TREPROSTINIL
     Dosage: 0.02 UNK
     Route: 065
  3. ADEMPAS [Concomitant]
     Active Substance: RIOCIGUAT
  4. REMODULIN [Suspect]
     Active Substance: TREPROSTINIL
     Indication: PRODUCT USED FOR UNKNOWN INDICATION
     Route: 065
  5. ADCIRCA [Concomitant]
     Active Substance: TADALAFIL

REACTIONS (4)
  - Dyspnoea [Unknown]
  - Malaise [Unknown]
  - Catheter management [Unknown]
  - Helicobacter infection [Unknown]

NARRATIVE: CASE EVENT DATE: 201909
